FAERS Safety Report 14425416 (Version 1)
Quarter: 2018Q1

REPORT INFORMATION
  Report Type: Spontaneous
  Country: US (occurrence: US)
  Receive Date: 20180123
  Receipt Date: 20180123
  Transmission Date: 20180509
  Serious: No
  Sender: FDA-Public Use
  Company Number: US-PERRIGO-17US003123

PATIENT
  Age: 5 Year
  Sex: Male
  Weight: 17.23 kg

DRUGS (1)
  1. IBUPROFEN. [Suspect]
     Active Substance: IBUPROFEN
     Indication: PYREXIA
     Dosage: 150 MG, TWICE
     Route: 048
     Dates: start: 20170407, end: 20170407

REACTIONS (5)
  - Chills [Recovered/Resolved]
  - Abnormal dreams [Recovered/Resolved]
  - Palpitations [Recovered/Resolved]
  - Hallucination [Recovered/Resolved]
  - Crying [Unknown]

NARRATIVE: CASE EVENT DATE: 20170407
